FAERS Safety Report 20907489 (Version 3)
Quarter: 2022Q3

REPORT INFORMATION
  Report Type: Spontaneous
  Country: US (occurrence: US)
  Receive Date: 20220602
  Receipt Date: 20220901
  Transmission Date: 20221026
  Serious: Yes (Other)
  Sender: FDA-Public Use
  Company Number: US-BRISTOL-MYERS SQUIBB COMPANY-2022-040708

PATIENT
  Age: 71 Year
  Sex: Male

DRUGS (1)
  1. REVLIMID [Suspect]
     Active Substance: LENALIDOMIDE
     Indication: Product used for unknown indication
     Dosage: FREQ-TAKE 1CAPSULE BY MOUTH DAILY FOR 21 DAYS THEN OFF FOR 7 DAYS.
     Route: 065
     Dates: start: 20210413

REACTIONS (4)
  - Blood urine present [Unknown]
  - Neuropathy peripheral [Unknown]
  - Product dose omission issue [Unknown]
  - Intentional product use issue [Unknown]
